FAERS Safety Report 6427183-6 (Version None)
Quarter: 2009Q4

REPORT INFORMATION
  Report Type: 
  Country: None (occurrence: None)
  Receive Date: 20091030
  Receipt Date: 20091020
  Transmission Date: 20100525
  Serious: Yes (Hospitalization)
  Sender: FDA-Public Use
  Company Number: CERZ-1000989

PATIENT
  Age: 37 Year
  Sex: Male

DRUGS (1)
  1. CEREZYME [Suspect]
     Indication: GAUCHER'S DISEASE
     Dosage: 3200 U, Q2W, INTRAVENOUS
     Route: 042
     Dates: start: 19970606, end: 20050301

REACTIONS (2)
  - CONVULSION [None]
  - ELECTROLYTE IMBALANCE [None]
